FAERS Safety Report 8361688-6 (Version None)
Quarter: 2012Q2

REPORT INFORMATION
  Report Type: 
  Country: None (occurrence: None)
  Receive Date: 20120515
  Receipt Date: 20110906
  Transmission Date: 20120825
  Serious: Yes (Other)
  Sender: FDA-Public Use
  Company Number: US-ABBOTT-11P-163-0848232-00

PATIENT
  Sex: Female

DRUGS (3)
  1. ASPIRIN [Concomitant]
     Indication: PRODUCT USED FOR UNKNOWN INDICATION
     Route: 048
     Dates: start: 20110701
  2. PROMETRIUM [Suspect]
     Indication: PREGNANCY
     Route: 048
     Dates: start: 20110101
  3. PROMETRIUM [Suspect]
     Route: 067
     Dates: start: 20110701

REACTIONS (4)
  - HUMAN CHORIONIC GONADOTROPIN INCREASED [None]
  - ABORTION SPONTANEOUS [None]
  - VAGINAL HAEMORRHAGE [None]
  - VULVOVAGINAL DISCOMFORT [None]
